FAERS Safety Report 5034660-1 (Version None)
Quarter: 2006Q2

REPORT INFORMATION
  Report Type: 
  Country: None (occurrence: None)
  Receive Date: 20060621
  Receipt Date: 20060615
  Transmission Date: 20061013
  Serious: Yes (Death)
  Sender: FDA-Public Use
  Company Number: 200610641BYL

PATIENT
  Age: 52 Year
  Sex: Male

DRUGS (7)
  1. AVELOX [Suspect]
     Indication: BRONCHITIS ACUTE
     Dosage: 400 MG, QD, ORAL
     Route: 048
     Dates: start: 20060515, end: 20060516
  2. GASTER D [Concomitant]
  3. CODEINE PHOSPHATE [Concomitant]
  4. MUCOSOLVAN [Concomitant]
  5. LOXONIN [Concomitant]
  6. ADONA [Concomitant]
  7. TRANSAMIN [Concomitant]

REACTIONS (5)
  - HAEMOPTYSIS [None]
  - LUNG NEOPLASM MALIGNANT [None]
  - MALIGNANT NEOPLASM PROGRESSION [None]
  - PROCEDURAL COMPLICATION [None]
  - TRACHEAL HAEMORRHAGE [None]
